FAERS Safety Report 7353636-2 (Version None)
Quarter: 2011Q1

REPORT INFORMATION
  Report Type: 
  Country: None (occurrence: None)
  Receive Date: 20110303
  Receipt Date: 20100528
  Transmission Date: 20110831
  Serious: Yes (Other)
  Sender: FDA-Public Use
  Company Number: US-004532

PATIENT
  Age: 43 Year
  Sex: Male

DRUGS (5)
  1. ISOVUE-M 300 [Suspect]
     Indication: COMPUTERISED TOMOGRAM
     Dosage: INTRATHECAL
     Route: 037
     Dates: start: 20100525, end: 20100525
  2. ISOVUE-M 300 [Suspect]
     Indication: SPINAL MYELOGRAM
     Dosage: INTRATHECAL
     Route: 037
     Dates: start: 20100525, end: 20100525
  3. METOPROLOL (METOPROLOL) [Concomitant]
  4. ATENOLOL [Concomitant]
  5. LISINOPRIL [Concomitant]

REACTIONS (1)
  - CONVULSION [None]
